FAERS Safety Report 13331289 (Version 3)
Quarter: 2018Q1

REPORT INFORMATION
  Report Type: Report from Study
  Country: CA (occurrence: CA)
  Receive Date: 20170314
  Receipt Date: 20180121
  Transmission Date: 20180508
  Serious: Yes (Other)
  Sender: FDA-Public Use
  Company Number: CA-TAKEDA-2016MPI008021

PATIENT
  Age: 45 Year
  Sex: Male

DRUGS (7)
  1. REVLIMID [Suspect]
     Active Substance: LENALIDOMIDE
     Dosage: UNK
     Route: 065
  2. VELCADE [Suspect]
     Active Substance: BORTEZOMIB
     Indication: PLASMA CELL MYELOMA
     Dosage: 1.3 MG, UNK
     Route: 065
     Dates: start: 20111031
  3. VELCADE [Suspect]
     Active Substance: BORTEZOMIB
     Dosage: UNK, 1/WEEK
     Route: 065
  4. CYCLOPHOSPHAMIDE. [Concomitant]
     Active Substance: CYCLOPHOSPHAMIDE
     Dosage: 250 MG, 1/WEEK
     Route: 065
  5. REVLIMID [Suspect]
     Active Substance: LENALIDOMIDE
     Dosage: 5 MG, QD
     Route: 065
  6. REVLIMID [Suspect]
     Active Substance: LENALIDOMIDE
     Indication: PLASMA CELL MYELOMA
     Dosage: 10 MG, QD
     Route: 065
  7. DEXAMETHASONE. [Concomitant]
     Active Substance: DEXAMETHASONE
     Dosage: 10 MG, 1/WEEK
     Route: 065

REACTIONS (8)
  - Appendicitis [Recovered/Resolved]
  - Plasma cell myeloma recurrent [Unknown]
  - Oropharyngeal pain [Recovering/Resolving]
  - Diarrhoea [Unknown]
  - Thrombocytopenia [Unknown]
  - End stage renal disease [Unknown]
  - Blood uric acid increased [Unknown]
  - Dysphonia [Unknown]

NARRATIVE: CASE EVENT DATE: 2013
